FAERS Safety Report 5892442-2 (Version None)
Quarter: 2008Q3

REPORT INFORMATION
  Report Type: 
  Country: None (occurrence: None)
  Receive Date: 20080919
  Receipt Date: 20080904
  Transmission Date: 20090109
  Serious: Yes (Other)
  Sender: FDA-Public Use
  Company Number: 030199

PATIENT
  Age: 30 Year
  Sex: Female

DRUGS (3)
  1. CLARAVIS [Suspect]
     Dosage: 40 MG, BID,ORAL
     Route: 048
     Dates: start: 20080226, end: 20080619
  2. PREGNYL [Concomitant]
  3. ORAL CONTRACEPTIVE NOS (ORAL CONTRACEPTIVE NOS) [Concomitant]

REACTIONS (5)
  - ABORTION SPONTANEOUS [None]
  - DRUG EXPOSURE DURING PREGNANCY [None]
  - LIP DRY [None]
  - NASAL DRYNESS [None]
  - UNINTENDED PREGNANCY [None]
